FAERS Safety Report 23985377 (Version 1)
Quarter: 2024Q2

REPORT INFORMATION
  Report Type: Spontaneous
  Country: JP (occurrence: JP)
  Receive Date: 20240618
  Receipt Date: 20240618
  Transmission Date: 20240716
  Serious: Yes (Other)
  Sender: FDA-Public Use
  Company Number: JP-BRISTOL-MYERS SQUIBB COMPANY-2024-095282

PATIENT
  Sex: Male

DRUGS (1)
  1. ELIQUIS [Suspect]
     Active Substance: APIXABAN
     Indication: Product used for unknown indication
     Dosage: MORNING 2.5MG, EVENING 2.5MG
     Route: 048

REACTIONS (6)
  - Peripheral nerve injury [Unknown]
  - Fall [Unknown]
  - Contusion [Unknown]
  - Oedema peripheral [Unknown]
  - Cardiac valve disease [Unknown]
  - Limb injury [Unknown]
